FAERS Safety Report 4618026-1 (Version None)
Quarter: 2005Q1

REPORT INFORMATION
  Report Type: 
  Country: None (occurrence: None)
  Receive Date: 20050322
  Receipt Date: 20050307
  Transmission Date: 20050727
  Serious: Yes (Hospitalization)
  Sender: FDA-Public Use
  Company Number: 9039997-2005-00026

PATIENT
  Age: 82 Year
  Sex: Male

DRUGS (4)
  1. AMINOLEVULINIC ACID (ALA) 60 MG/KG [Suspect]
     Indication: BARRETT'S OESOPHAGUS
     Dosage: 60 MG/KG, ONCE, ORAL
     Route: 048
  2. AMINOLEVULINIC ACID (ALA) 60 MG/KG [Suspect]
     Indication: BARRETT'S OESOPHAGUS
     Dosage: 60 MG/KG, ONCE, ORAL
     Route: 048
  3. ATENOLOL [Concomitant]
  4. ISOSORBIDE MONONITRATE [Concomitant]

REACTIONS (2)
  - NEUROPATHY [None]
  - PORPHYRIA [None]
